FAERS Safety Report 9657411 (Version 2)
Quarter: 2013Q4

REPORT INFORMATION
  Report Type: Spontaneous
  Country: US (occurrence: US)
  Receive Date: 20131030
  Receipt Date: 20131030
  Transmission Date: 20140711
  Serious: Yes (Other)
  Sender: FDA-Public Use
  Company Number: US-BRISTOL-MYERS SQUIBB COMPANY-18845396

PATIENT
  Age: 69 Year
  Sex: Female

DRUGS (2)
  1. ORENCIA [Suspect]
     Indication: RHEUMATOID ARTHRITIS
     Dosage: FREQ: 3 INFUSIONS TWO WEEKS APART
     Route: 042
     Dates: start: 201303
  2. BOTOX [Concomitant]

REACTIONS (2)
  - Foot fracture [Not Recovered/Not Resolved]
  - Pain [Unknown]
